FAERS Safety Report 7552806-8 (Version None)
Quarter: 2011Q2

REPORT INFORMATION
  Report Type: 
  Country: None (occurrence: None)
  Receive Date: 20110616
  Receipt Date: 20110608
  Transmission Date: 20111010
  Serious: Yes (Other)
  Sender: FDA-Public Use
  Company Number: GXKR2010JP13281

PATIENT
  Sex: Male

DRUGS (4)
  1. VALSARTAN [Suspect]
     Dosage: UNK UKN, UNK
     Route: 065
  2. ATENOLOL [Suspect]
     Dosage: UNK UKN, UNK
     Route: 065
  3. URINORM [Suspect]
     Indication: GOUT
     Dosage: 25 MG, UNK
     Route: 048
  4. ENALAPRIL MALEATE [Suspect]
     Dosage: UNK UKN, UNK
     Route: 048

REACTIONS (1)
  - LIVER DISORDER [None]
